FAERS Safety Report 9726020 (Version 4)
Quarter: 2014Q1

REPORT INFORMATION
  Report Type: Report from Study
  Country: CZ (occurrence: CZ)
  Receive Date: 20131203
  Receipt Date: 20140306
  Transmission Date: 20141002
  Serious: Yes (Hospitalization)
  Sender: FDA-Public Use
  Company Number: CZ-ROCHE-1291770

PATIENT
  Age: 68 Year
  Sex: Female
  Weight: 97 kg

DRUGS (14)
  1. VEMURAFENIB [Suspect]
     Indication: METASTATIC MALIGNANT MELANOMA
     Route: 048
     Dates: start: 20130927, end: 20131010
  2. VEMURAFENIB [Suspect]
     Dosage: 2 TABLETS TWICE DAILY
     Route: 048
     Dates: start: 20131017
  3. BLINDED COBIMETINIB [Suspect]
     Indication: METASTATIC MALIGNANT MELANOMA
     Dosage: BLINDED DOSE?LAST DOSE PRIOR TO THE EVENT : 02/OCT/2013
     Route: 048
     Dates: start: 20130927
  4. ENALAPRIL [Concomitant]
     Indication: HYPERTENSION
     Route: 048
     Dates: start: 2000
  5. ACIDUM SALICYLICUM [Concomitant]
     Indication: VENOUS INSUFFICIENCY
     Route: 048
     Dates: start: 2000
  6. ACEBUTOLOL [Concomitant]
     Indication: HYPERTENSION
     Route: 048
     Dates: start: 2000
  7. INDAPAMIDE [Concomitant]
     Indication: HYPERTENSION
     Route: 048
     Dates: start: 2000
  8. KALII CHLORIDI [Concomitant]
     Indication: HYPOKALAEMIA
     Route: 048
     Dates: start: 2013
  9. ALLOPURINOL [Concomitant]
     Indication: HYPERURICAEMIA
     Route: 048
     Dates: start: 2000
  10. OMEPRAZOLE [Concomitant]
     Indication: ABDOMINAL DISCOMFORT
     Route: 048
     Dates: start: 20130919
  11. ESCIN [Concomitant]
     Dosage: INDICATION: RETINAL ABLATION
     Route: 048
     Dates: start: 20131003, end: 20131011
  12. BETAMETHASONE [Concomitant]
     Indication: RASH
     Route: 061
     Dates: start: 20131008, end: 20131024
  13. METOCLOPRAMIDE [Concomitant]
     Indication: NAUSEA
     Route: 048
     Dates: start: 20131007
  14. BISULEPIN [Concomitant]
     Indication: DERMATITIS
     Route: 065
     Dates: start: 20131011, end: 20131014

REACTIONS (1)
  - Abdominal pain [Recovered/Resolved]
